FAERS Safety Report 5384975-2 (Version None)
Quarter: 2007Q3

REPORT INFORMATION
  Report Type: 
  Country: None (occurrence: None)
  Receive Date: 20070709
  Receipt Date: 20070626
  Transmission Date: 20080115
  Serious: Yes (Death, Hospitalization, Other)
  Sender: FDA-Public Use
  Company Number: 38521

PATIENT
  Age: 60 Year
  Sex: Female

DRUGS (2)
  1. METHOTREXATE [Suspect]
     Indication: PRECURSOR T-LYMPHOBLASTIC LYMPHOMA/LEUKAEMIA
  2. CYTARABINE FOR INJ.          USP 100MG [Suspect]

REACTIONS (5)
  - HYPOAESTHESIA [None]
  - MUSCULAR WEAKNESS [None]
  - SENSORY DISTURBANCE [None]
  - SPINAL CORD DISORDER [None]
  - URINARY INCONTINENCE [None]
